FAERS Safety Report 10582385 (Version 1)
Quarter: 2014Q4

REPORT INFORMATION
  Report Type: Spontaneous
  Country: US (occurrence: US)
  Receive Date: 20141113
  Receipt Date: 20141113
  Transmission Date: 20150529
  Serious: Yes (Other)
  Sender: FDA-Public Use
  Company Number: US-BAYER-2014-165627

PATIENT
  Age: 29 Year
  Sex: Female

DRUGS (1)
  1. MIRENA [Suspect]
     Active Substance: LEVONORGESTREL
     Dosage: 20 MCG/24HR, CONT
     Route: 015
     Dates: start: 20111125

REACTIONS (9)
  - Benign intracranial hypertension [None]
  - Vision blurred [None]
  - CSF pressure increased [None]
  - Ocular discomfort [None]
  - Optic neuritis [None]
  - Headache [None]
  - Injury [None]
  - Pain [None]
  - Device defective [None]

NARRATIVE: CASE EVENT DATE: 20121102
